FAERS Safety Report 25297439 (Version 1)
Quarter: 2025Q2

REPORT INFORMATION
  Report Type: Spontaneous
  Country: US (occurrence: US)
  Receive Date: 20250511
  Receipt Date: 20250511
  Transmission Date: 20250716
  Serious: No
  Sender: SANOFI AVENTIS
  Company Number: US-SA-2025SA127017

PATIENT
  Age: 3 Year
  Sex: Male

DRUGS (1)
  1. DUPIXENT [Suspect]
     Active Substance: DUPILUMAB
     Indication: Eczema
     Dosage: 200 MG, Q4W
     Route: 058
     Dates: start: 20250221

REACTIONS (7)
  - Dermatitis [Recovered/Resolved]
  - Sleep disorder due to a general medical condition [Unknown]
  - Body temperature increased [Unknown]
  - Dark circles under eyes [Unknown]
  - Pain in extremity [Unknown]
  - Diarrhoea [Recovering/Resolving]
  - Rash [Recovered/Resolved]

NARRATIVE: CASE EVENT DATE: 20250101
